FAERS Safety Report 4723711-7 (Version None)
Quarter: 2005Q3

REPORT INFORMATION
  Report Type: 
  Country: None (occurrence: None)
  Receive Date: 20050725
  Receipt Date: 20050711
  Transmission Date: 20060218
  Serious: Yes (Death, Other)
  Sender: FDA-Public Use
  Company Number: JP-JNJFOC-20041203486

PATIENT
  Age: 33 Year
  Sex: Male
  Weight: 65 kg

DRUGS (21)
  1. CLADRIBINE [Suspect]
     Route: 050
     Dates: start: 19981016, end: 19981123
  2. CLADRIBINE [Suspect]
     Indication: B-CELL LYMPHOMA
     Dosage: 7 CONSECUTIVE DAYS, EVERY 4 WEEKS, UP TO A MAXIMUM OF 6 CYCLES
     Route: 050
     Dates: start: 19981016, end: 19981123
  3. BLEOMYCIN [Suspect]
     Indication: LYMPHOMA
     Dates: start: 19880301, end: 19890301
  4. CYCLOPHOSPHAMIDE [Suspect]
     Indication: LYMPHOMA
     Dates: start: 19940301, end: 19940801
  5. CYTARABINE [Suspect]
     Indication: DRUG USE FOR UNKNOWN INDICATION
     Dates: start: 19940301, end: 19940801
  6. DOXORUBICIN HYDROCHLORIDE [Suspect]
     Indication: LYMPHOMA
     Dates: start: 19880301, end: 19890301
  7. IFOSFAMIDE [Suspect]
     Indication: LYMPHOMA
     Dates: start: 19930101, end: 19930401
  8. MELPHALAN [Suspect]
     Indication: DRUG USE FOR UNKNOWN INDICATION
     Dates: start: 19940301, end: 19940801
  9. METHOTREXATE [Suspect]
     Indication: LYMPHOMA
     Dates: start: 19980721, end: 19980907
  10. MITOXANTRONE [Suspect]
     Indication: LYMPHOMA
     Dates: start: 19940301, end: 19940801
  11. NIMUSTINE [Suspect]
     Indication: LYMPHOMA
     Dates: start: 19900801, end: 19910101
  12. PARAPLATIN [Suspect]
     Indication: LYMPHOMA
     Dates: start: 19930101, end: 19930401
  13. PREDNISOLONE [Suspect]
     Indication: LYMPHOMA
     Dates: start: 19920301, end: 19930601
  14. PROCARBAZINE [Suspect]
     Indication: LYMPHOMA
     Dates: start: 19920301, end: 19930101
  15. RITUXIMAB [Suspect]
     Indication: LYMPHOMA
     Dates: start: 19960605, end: 19970916
  16. SOBUZOXANE [Suspect]
     Indication: LYMPHOMA
     Dates: start: 19950301, end: 19960401
  17. THP-ADRIAMYCIN [Suspect]
     Indication: LYMPHOMA
     Dates: start: 19900801, end: 19910101
  18. VDS [Suspect]
     Indication: LYMPHOMA
     Dates: start: 19900801, end: 19910101
  19. VINCRISTINE [Suspect]
     Indication: MYCOSIS FUNGOIDES
     Dates: start: 19920301, end: 19930101
  20. VP-16 [Suspect]
     Indication: DRUG USE FOR UNKNOWN INDICATION
  21. RADIOTHERAPY [Concomitant]

REACTIONS (1)
  - MYELODYSPLASTIC SYNDROME [None]
